FAERS Safety Report 17870077 (Version 1)
Quarter: 2020Q2

REPORT INFORMATION
  Report Type: Spontaneous
  Country: US (occurrence: US)
  Receive Date: 20200605
  Receipt Date: 20200605
  Transmission Date: 20200714
  Serious: Yes (Other)
  Sender: FDA-Public Use
  Company Number: None

PATIENT
  Age: 58 Year
  Sex: Female

DRUGS (1)
  1. COSOPT [Suspect]
     Active Substance: DORZOLAMIDE HYDROCHLORIDE\TIMOLOL MALEATE

REACTIONS (8)
  - Therapy cessation [None]
  - Swelling face [None]
  - Eye irritation [None]
  - Hypersensitivity [None]
  - Eye pruritus [None]
  - Foreign body sensation in eyes [None]
  - Tenderness [None]
  - Eye discharge [None]
